FAERS Safety Report 16686028 (Version 1)
Quarter: 2019Q3

REPORT INFORMATION
  Report Type: Spontaneous
  Country: JP (occurrence: JP)
  Receive Date: 20190809
  Receipt Date: 20190809
  Transmission Date: 20191004
  Serious: Yes (Hospitalization, Other)
  Sender: FDA-Public Use
  Company Number: JP-ACTELION-A-CH2019-193954

PATIENT
  Age: 8 Month
  Sex: Female
  Weight: 10 kg

DRUGS (10)
  1. PREDNISOLONE. [Concomitant]
     Active Substance: PREDNISOLONE
     Indication: IMMUNOSUPPRESSION
  2. BOSENTAN. [Suspect]
     Active Substance: BOSENTAN
     Indication: PULMONARY ARTERIAL HYPERTENSION
     Route: 048
  3. EPOPROSTENOL SODIUM. [Suspect]
     Active Substance: EPOPROSTENOL SODIUM
     Indication: PULMONARY ARTERIAL HYPERTENSION
     Dosage: 54 NG/KG, PER MIN
     Route: 042
  4. MYCOPHENOLATE MOFETIL. [Concomitant]
     Active Substance: MYCOPHENOLATE MOFETIL
     Indication: IMMUNOSUPPRESSION
  5. TACROLIMUS. [Concomitant]
     Active Substance: TACROLIMUS
     Indication: IMMUNOSUPPRESSION
  6. BERAPROST [Concomitant]
     Active Substance: BERAPROST
     Indication: PULMONARY ARTERIAL HYPERTENSION
     Route: 048
  7. SILDENAFIL. [Concomitant]
     Active Substance: SILDENAFIL
     Indication: PULMONARY ARTERIAL HYPERTENSION
     Route: 048
  8. OXYGEN. [Concomitant]
     Active Substance: OXYGEN
  9. EPOPROSTENOL SODIUM. [Suspect]
     Active Substance: EPOPROSTENOL SODIUM
     Dosage: 100 NG/KG, PER MIN
     Route: 042
  10. NITRIC OXIDE. [Concomitant]
     Active Substance: NITRIC OXIDE
     Indication: PULMONARY ARTERIAL HYPERTENSION
     Route: 055

REACTIONS (11)
  - Cytomegalovirus infection [Recovered/Resolved]
  - Lung transplant [Recovered/Resolved]
  - Drug ineffective [Unknown]
  - Pulmonary arterial hypertension [Unknown]
  - Pulmonary hypertensive crisis [Unknown]
  - Catheterisation cardiac [Unknown]
  - Bronchoplasty [Recovered/Resolved]
  - Condition aggravated [Unknown]
  - Right ventricular enlargement [Unknown]
  - Bronchostenosis [Recovered/Resolved]
  - Right ventricular dilatation [Unknown]
